FAERS Safety Report 7312829-0 (Version None)
Quarter: 2011Q1

REPORT INFORMATION
  Report Type: 
  Country: None (occurrence: None)
  Receive Date: 20110224
  Receipt Date: 20101119
  Transmission Date: 20110831
  Serious: No
  Sender: FDA-Public Use
  Company Number: US-MYLANLABS-2010S1017806

PATIENT
  Age: 73 Year
  Sex: Male
  Weight: 75.3 kg

DRUGS (6)
  1. TRAZODONE HCL [Concomitant]
     Indication: INSOMNIA
  2. MULTIVITAMIN [Concomitant]
  3. XANAX [Concomitant]
  4. METOPROLOL TARTRATE [Suspect]
     Indication: PALPITATIONS
     Route: 048
     Dates: start: 20091201
  5. METOPROLOL TARTRATE [Suspect]
     Indication: HYPERTENSION
     Route: 048
     Dates: start: 20091201
  6. ASPIRIN [Concomitant]

REACTIONS (10)
  - SKIN BURNING SENSATION [None]
  - CONSTIPATION [None]
  - HEART RATE INCREASED [None]
  - DEPRESSION [None]
  - HEADACHE [None]
  - ANXIETY [None]
  - MUSCULAR WEAKNESS [None]
  - HEARING IMPAIRED [None]
  - INSOMNIA [None]
  - TINNITUS [None]
